FAERS Safety Report 18642578 (Version 2)
Quarter: 2024Q2

REPORT INFORMATION
  Report Type: Other
  Country: IS (occurrence: IS)
  Receive Date: 20201221
  Receipt Date: 20240415
  Transmission Date: 20240715
  Serious: Yes (Death)
  Sender: FDA-Public Use
  Company Number: IS-ROCHE-2736962

PATIENT
  Age: 67 Year
  Sex: Female

DRUGS (1)
  1. RITUXIMAB [Suspect]
     Active Substance: RITUXIMAB
     Indication: Sjogren^s syndrome
     Route: 065

REACTIONS (2)
  - Colitis ulcerative [Fatal]
  - Off label use [Fatal]
